FAERS Safety Report 8187135-5 (Version None)
Quarter: 2012Q1

REPORT INFORMATION
  Report Type: 
  Country: None (occurrence: None)
  Receive Date: 20120213
  Receipt Date: 20111101
  Transmission Date: 20120608
  Serious: No
  Sender: FDA-Public Use
  Company Number: 1000025154

PATIENT
  Age: 61 Year
  Sex: Female

DRUGS (5)
  1. SAVELLA [Suspect]
     Indication: FIBROMYALGIA
     Dosage: 12.5 MG (12.5 MG, 1 IN 1 D), ORAL
     Route: 048
     Dates: start: 20111027, end: 20111027
  2. HYDROCHLOROTHIAZIDE [Concomitant]
  3. CORTISOL (CORTISOL) (CORTISOL) [Concomitant]
  4. ZANAFLEX (TIZANIDINE HYDROCHLORIDE) (TIZANIDINE HYDROCHLORIDE) [Concomitant]
  5. HORMONE REPLACEMENT THERAPY NOS (HORMONE REPLACEMENT THERAPY NOS) (HOR [Concomitant]

REACTIONS (1)
  - HYPERHIDROSIS [None]
